FAERS Safety Report 26089637 (Version 2)
Quarter: 2025Q4

REPORT INFORMATION
  Report Type: Spontaneous
  Country: BR (occurrence: BR)
  Receive Date: 20251125
  Receipt Date: 20251201
  Transmission Date: 20260118
  Serious: Yes (Other)
  Sender: JOHNSON AND JOHNSON
  Company Number: BR-JNJFOC-20251164785

PATIENT
  Sex: Male

DRUGS (1)
  1. TOPAMAX [Suspect]
     Active Substance: TOPIRAMATE
     Indication: Product used for unknown indication
     Route: 048

REACTIONS (7)
  - Hepatic cirrhosis [Unknown]
  - Neoplasm malignant [Unknown]
  - Glaucoma [Unknown]
  - Weight decreased [Unknown]
  - Product formulation issue [Unknown]
  - Labyrinthitis [Unknown]
  - Gastrooesophageal reflux disease [Unknown]
